FAERS Safety Report 13814220 (Version 1)
Quarter: 2017Q3

REPORT INFORMATION
  Report Type: Spontaneous
  Country: US (occurrence: US)
  Receive Date: 20170726
  Receipt Date: 20170726
  Transmission Date: 20171127
  Serious: No
  Sender: FDA-Public Use
  Company Number: None

PATIENT
  Age: 78 Year
  Sex: Female
  Weight: 63.56 kg

DRUGS (4)
  1. PRAVASTATIN. [Suspect]
     Active Substance: PRAVASTATIN
     Indication: COUGH
     Dates: start: 20170705
  2. PLAVIX [Concomitant]
     Active Substance: CLOPIDOGREL BISULFATE
  3. WAL-TUSSIN D MAX [Concomitant]
  4. PRAVASTATIN. [Suspect]
     Active Substance: PRAVASTATIN
     Indication: BRONCHITIS
     Dates: start: 20170705

REACTIONS (6)
  - Cough [None]
  - Myalgia [None]
  - Nasal congestion [None]
  - Rhinorrhoea [None]
  - Pain in extremity [None]
  - Oropharyngeal pain [None]

NARRATIVE: CASE EVENT DATE: 20170702
